FAERS Safety Report 8223912-X (Version None)
Quarter: 2012Q1

REPORT INFORMATION
  Report Type: 
  Country: None (occurrence: None)
  Receive Date: 20120321
  Receipt Date: 20120316
  Transmission Date: 20120608
  Serious: Yes (Other)
  Sender: FDA-Public Use
  Company Number: US-PFIZER INC-2012070076

PATIENT
  Sex: Female
  Weight: 68.9 kg

DRUGS (12)
  1. ESTRADIOL [Suspect]
     Indication: MENOPAUSAL SYMPTOMS
     Dosage: 0.5 MG, 1X/DAY
     Route: 048
     Dates: start: 20120201, end: 20120201
  2. PROGESTERONE [Suspect]
     Indication: MOOD SWINGS
  3. PREMPRO [Suspect]
     Indication: MENOPAUSAL SYMPTOMS
     Dosage: 0.45/1.5 MG, 1X/DAY
     Route: 048
     Dates: end: 20120101
  4. ESTRADIOL [Suspect]
     Indication: HOT FLUSH
  5. PROGESTERONE [Suspect]
     Indication: HOT FLUSH
  6. PROGESTERONE [Suspect]
     Indication: ANXIETY
  7. PREMPRO [Suspect]
     Indication: HOT FLUSH
  8. ESTRADIOL [Suspect]
     Indication: MOOD SWINGS
  9. PROGESTERONE [Suspect]
     Indication: MENOPAUSAL SYMPTOMS
     Dosage: 1.25 MG, 1X/DAY
     Route: 048
     Dates: start: 20120201, end: 20120201
  10. PREMPRO [Suspect]
     Indication: MOOD SWINGS
  11. PREMPRO [Suspect]
     Indication: ANXIETY
  12. ESTRADIOL [Suspect]
     Indication: ANXIETY

REACTIONS (5)
  - PAIN [None]
  - ARTHRITIS [None]
  - MUSCULOSKELETAL PAIN [None]
  - ARTHRALGIA [None]
  - HYPOKINESIA [None]
